FAERS Safety Report 5305490-8 (Version None)
Quarter: 2007Q2

REPORT INFORMATION
  Report Type: 
  Country: None (occurrence: None)
  Receive Date: 20070424
  Receipt Date: 20070416
  Transmission Date: 20071010
  Serious: Yes (Hospitalization, Other)
  Sender: FDA-Public Use
  Company Number: US-JNJFOC-20070403652

PATIENT
  Sex: Female
  Weight: 90.72 kg

DRUGS (6)
  1. DURAGESIC-100 [Suspect]
     Route: 062
  2. DURAGESIC-100 [Suspect]
     Route: 062
  3. DURAGESIC-100 [Suspect]
     Indication: ANALGESIC EFFECT
     Route: 062
  4. PHENERGAN [Suspect]
     Indication: VOMITING
     Route: 065
  5. PREDNISONE TAB [Concomitant]
     Indication: INFLAMMATION
     Route: 048
  6. PREMARIN [Concomitant]
     Indication: OESTROGEN REPLACEMENT THERAPY
     Route: 048

REACTIONS (11)
  - ABSCESS LIMB [None]
  - ARTHRITIS [None]
  - GAIT DISTURBANCE [None]
  - GASTROENTERITIS VIRAL [None]
  - HYPERSOMNIA [None]
  - OEDEMA PERIPHERAL [None]
  - RHEUMATOID ARTHRITIS [None]
  - RHEUMATOID NODULE [None]
  - SOMNOLENCE [None]
  - STAPHYLOCOCCAL INFECTION [None]
  - VOMITING [None]
